FAERS Safety Report 9812879 (Version 1)
Quarter: 2014Q1

REPORT INFORMATION
  Report Type: Spontaneous
  Country: US (occurrence: US)
  Receive Date: 20140113
  Receipt Date: 20140113
  Transmission Date: 20141002
  Serious: No
  Sender: FDA-Public Use
  Company Number: US-PFIZER INC-2014010324

PATIENT
  Age: 68 Year
  Sex: Female
  Weight: 63.49 kg

DRUGS (4)
  1. LYRICA [Suspect]
     Indication: NEUROPATHY PERIPHERAL
     Dosage: 50 MG, 3X/DAY
     Route: 048
     Dates: start: 201309
  2. LYRICA [Suspect]
     Dosage: 50 MG, 2X/DAY
     Route: 048
  3. CELEXA [Concomitant]
     Indication: ANXIETY
     Dosage: 120 MG, DAILY
  4. CELEXA [Concomitant]
     Indication: DEPRESSION

REACTIONS (3)
  - Memory impairment [Unknown]
  - Confusional state [Unknown]
  - Weight increased [Unknown]
